FAERS Safety Report 23241209 (Version 2)
Quarter: 2024Q1

REPORT INFORMATION
  Report Type: Spontaneous
  Country: US (occurrence: US)
  Receive Date: 20231129
  Receipt Date: 20240119
  Transmission Date: 20240410
  Serious: No
  Sender: FDA-Public Use
  Company Number: US-SA-SAC20231122001057

PATIENT
  Age: 55 Year
  Sex: Female

DRUGS (1)
  1. FABRAZYME [Suspect]
     Active Substance: AGALSIDASE BETA
     Indication: Fabry^s disease
     Dosage: 105 MG, QOW
     Route: 042
     Dates: start: 201811

REACTIONS (2)
  - Herpes zoster [Unknown]
  - Back pain [Unknown]

NARRATIVE: CASE EVENT DATE: 20231108
